FAERS Safety Report 17260083 (Version 1)
Quarter: 2020Q1

REPORT INFORMATION
  Report Type: Report from Study
  Country: ES (occurrence: ES)
  Receive Date: 20200111
  Receipt Date: 20200111
  Transmission Date: 20200409
  Serious: Yes (Other)
  Sender: FDA-Public Use
  Company Number: ES-TEVA-2020-ES-1166283

PATIENT

DRUGS (1)
  1. NIFEDIPINO (3253A) [Suspect]
     Active Substance: NIFEDIPINE
     Indication: POSTPONEMENT OF PRETERM DELIVERY
     Dosage: SINGLE DOSE
     Route: 065
     Dates: start: 20191201, end: 20191201

REACTIONS (1)
  - Tachycardia foetal [Recovered/Resolved]

NARRATIVE: CASE EVENT DATE: 20191201
